FAERS Safety Report 7724066-6 (Version None)
Quarter: 2011Q3

REPORT INFORMATION
  Report Type: 
  Country: None (occurrence: None)
  Receive Date: 20110829
  Receipt Date: 20110815
  Transmission Date: 20111222
  Serious: Yes (Hospitalization)
  Sender: FDA-Public Use
  Company Number: 1000022646

PATIENT
  Age: 71 Year
  Sex: Female
  Weight: 78 kg

DRUGS (9)
  1. ESOMEPRAZOLE MAGNESIUM [Concomitant]
  2. RISEDRONIC ACID (RISEDRONATE SODIUM) [Concomitant]
  3. OXAZEPAM [Concomitant]
  4. ALBUTEROL [Concomitant]
  5. LEXAPRO [Suspect]
     Indication: DEPRESSION
     Dosage: 10 MG (10 MG, IN 1 D) ORAL
     Route: 048
     Dates: start: 20080501
  6. PROMOCARD DURETTE (ISOSORBIDE MONONITRATE) (TABLETS) [Concomitant]
  7. ACETYLSALICYLIC ACID SRT [Concomitant]
  8. METOPROLOL TARTRATE [Concomitant]
  9. LEXAPRO [Suspect]
     Indication: DEPRESSION
     Dosage: 5 MG (5 MG, 1 IN 1 D), ORAL
     Route: 048
     Dates: end: 20110721

REACTIONS (3)
  - DYSPNOEA [None]
  - PULMONARY HYPERTENSION [None]
  - INTERSTITIAL LUNG DISEASE [None]
